FAERS Safety Report 9267920 (Version 1)
Quarter: 2013Q2

REPORT INFORMATION
  Report Type: Spontaneous
  Country: US (occurrence: US)
  Receive Date: 20130502
  Receipt Date: 20130502
  Transmission Date: 20140414
  Serious: Yes (Other)
  Sender: FDA-Public Use
  Company Number: US-ALEXION-A201201200

PATIENT
  Sex: Female
  Weight: 56.7 kg

DRUGS (5)
  1. SOLIRIS 300MG [Suspect]
     Indication: PAROXYSMAL NOCTURNAL HAEMOGLOBINURIA
     Dosage: 900 MG, QW
     Route: 042
  2. SOLIRIS 300MG [Suspect]
     Dosage: 900 MG, Q2W
     Route: 042
  3. IMMUNOGLOBULIN [Suspect]
     Dosage: UNK
     Route: 042
  4. FOLIC ACID [Concomitant]
     Dosage: 1 DF, QD
  5. COUMADIN [Concomitant]
     Dosage: 10 MG TO 12 MG QD

REACTIONS (2)
  - Abdominal pain upper [Recovered/Resolved]
  - Drug hypersensitivity [Recovered/Resolved]
